FAERS Safety Report 4600800-9 (Version None)
Quarter: 2005Q1

REPORT INFORMATION
  Report Type: 
  Country: None (occurrence: None)
  Receive Date: 20050304
  Receipt Date: 20050225
  Transmission Date: 20050727
  Serious: Yes (Hospitalization)
  Sender: FDA-Public Use
  Company Number: 2005-BP-03028RO

PATIENT
  Age: 6 Month
  Sex: Male

DRUGS (1)
  1. PROPRANOLOL HYDROCHLORIDE [Suspect]
     Dosage: 4-FOLD OVERDOSE (SEE TEXT), PO
     Route: 048
     Dates: start: 20041210

REACTIONS (1)
  - MEDICATION ERROR [None]
